FAERS Safety Report 4819118-4 (Version None)
Quarter: 2005Q4

REPORT INFORMATION
  Report Type: 
  Country: None (occurrence: None)
  Receive Date: 20051101
  Receipt Date: 20051021
  Transmission Date: 20060501
  Serious: Yes (Hospitalization)
  Sender: FDA-Public Use
  Company Number: 05H-124-0303348-00

PATIENT
  Age: 32 Year
  Sex: Female

DRUGS (3)
  1. ABOCAIN SPINAL INJECTION (BUPIVACAINE HYDROCHLORIDE INJECTION) (BUPIVA [Suspect]
     Indication: CAESAREAN SECTION
     Dosage: 15 MG, ONCE, INTRATHECAL
     Route: 037
  2. ABOCAIN SPINAL INJECTION (BUPIVACAINE HYDROCHLORIDE INJECTION) (BUPIVA [Suspect]
     Indication: SPINAL ANAESTHESIA
     Dosage: 15 MG, ONCE, INTRATHECAL
     Route: 037
  3. CALCIUM CHANNEL BLOCKER (CALCIUM CHANNEL BLOCKER) [Concomitant]

REACTIONS (8)
  - CONVULSION [None]
  - DISORIENTATION [None]
  - HEADACHE [None]
  - INCOHERENT [None]
  - LOGORRHOEA [None]
  - POST PROCEDURAL COMPLICATION [None]
  - RESTLESSNESS [None]
  - SOMNOLENCE [None]
